FAERS Safety Report 6082507-7 (Version None)
Quarter: 2009Q1

REPORT INFORMATION
  Report Type: 
  Country: None (occurrence: None)
  Receive Date: 20090218
  Receipt Date: 20090205
  Transmission Date: 20090719
  Serious: Yes (Other)
  Sender: FDA-Public Use
  Company Number: US-AVENTIS-200911161US

PATIENT
  Age: 59 Year
  Sex: Female

DRUGS (2)
  1. LEFLUNOMIDE [Suspect]
     Dosage: DOSE: UNK
  2. LOVASTATIN [Suspect]
     Dosage: DOSE: UNK

REACTIONS (2)
  - HEPATOTOXICITY [None]
  - LIVER TRANSPLANT [None]
